FAERS Safety Report 18234036 (Version 1)
Quarter: 2020Q3

REPORT INFORMATION
  Report Type: Spontaneous
  Country: IT (occurrence: IT)
  Receive Date: 20200904
  Receipt Date: 20200904
  Transmission Date: 20201103
  Serious: Yes (Hospitalization, Other)
  Sender: FDA-Public Use
  Company Number: IT-SA-2020SA234350

PATIENT

DRUGS (6)
  1. STILNOX [Suspect]
     Active Substance: ZOLPIDEM TARTRATE
     Indication: BORDERLINE PERSONALITY DISORDER
     Dosage: 10 DF, TOTAL
     Route: 048
     Dates: start: 20180206, end: 20180206
  2. AKINETON [Concomitant]
     Active Substance: BIPERIDEN HYDROCHLORIDE
     Indication: EXTRAPYRAMIDAL DISORDER
     Dosage: 4 MG, QD
     Route: 048
  3. ALPRAZOLAM. [Suspect]
     Active Substance: ALPRAZOLAM
     Indication: BORDERLINE PERSONALITY DISORDER
     Dosage: 10 DF, TOTAL
     Route: 048
     Dates: start: 20180206, end: 20180206
  4. CARBOLITHIUM [Concomitant]
     Active Substance: LITHIUM CARBONATE
     Indication: BORDERLINE PERSONALITY DISORDER
     Dosage: 900 MG, QD
     Route: 048
  5. ARIPIPRAZOLE. [Suspect]
     Active Substance: ARIPIPRAZOLE
     Indication: BORDERLINE PERSONALITY DISORDER
     Dosage: 10 DF, TOTAL
     Route: 048
     Dates: start: 20180206, end: 20180206
  6. TALOFEN [Concomitant]
     Active Substance: PROMAZINE HYDROCHLORIDE
     Indication: BORDERLINE PERSONALITY DISORDER
     Dosage: 15 DROP, PRN
     Route: 048

REACTIONS (4)
  - Sedation [Recovering/Resolving]
  - Sopor [Recovering/Resolving]
  - Overdose [Unknown]
  - Drug abuse [Unknown]

NARRATIVE: CASE EVENT DATE: 20180206
